FAERS Safety Report 7830560-X (Version None)
Quarter: 2011Q4

REPORT INFORMATION
  Report Type: 
  Country: None (occurrence: None)
  Receive Date: 20111021
  Receipt Date: 20111017
  Transmission Date: 20120403
  Serious: Yes (Hospitalization)
  Sender: FDA-Public Use
  Company Number: US-AMGEN-USASP2011053476

PATIENT
  Age: 84 Year
  Sex: Female

DRUGS (16)
  1. NORVASC [Concomitant]
  2. VITAMIN E                          /00110501/ [Concomitant]
  3. METOPROLOL TARTRATE [Concomitant]
  4. BENAZEPRIL HYDROCHLORIDE [Concomitant]
  5. XALATAN [Concomitant]
  6. BC [Concomitant]
  7. PROLIA [Suspect]
     Indication: OSTEOPOROSIS POSTMENOPAUSAL
     Dosage: UNK
  8. POTASSIUM GLUCONATE TAB [Concomitant]
  9. PRILOSEC [Concomitant]
  10. MIRALAX [Concomitant]
  11. VITAMIN B12                        /00056201/ [Concomitant]
  12. VITAMIN D [Concomitant]
  13. METFORMIN HCL [Concomitant]
  14. ZOCOR [Concomitant]
  15. ASPIRIN [Concomitant]
  16. LASIX [Concomitant]

REACTIONS (2)
  - NEUROMYELITIS OPTICA [None]
  - MYELITIS [None]
